FAERS Safety Report 5477244-3 (Version None)
Quarter: 2007Q4

REPORT INFORMATION
  Report Type: 
  Country: None (occurrence: None)
  Receive Date: 20071004
  Receipt Date: 20070924
  Transmission Date: 20080405
  Serious: Yes (Hospitalization)
  Sender: FDA-Public Use
  Company Number: US-ELI_LILLY_AND_COMPANY-US200709002503

PATIENT
  Age: 83 Year
  Sex: Female
  Weight: 62.131 kg

DRUGS (13)
  1. FORTEO [Suspect]
     Indication: OSTEOPOROSIS
     Dosage: 20 UG, DAILY (1/D)
     Route: 058
     Dates: start: 20060724
  2. VITAMINS NOS [Concomitant]
  3. CITRACAL + D [Concomitant]
  4. TOPAMAX [Concomitant]
  5. SKELAXIN [Concomitant]
  6. XANAX [Concomitant]
  7. ZYRTEC [Concomitant]
  8. LUNESTA [Concomitant]
  9. SINGULAIR [Concomitant]
  10. ADVAIR DISKUS 100/50 [Concomitant]
  11. ACIPHEX [Concomitant]
  12. XOPENEX [Concomitant]
  13. SPIRIVA [Concomitant]

REACTIONS (3)
  - ASTHENIA [None]
  - FALL [None]
  - HUMERUS FRACTURE [None]
